FAERS Safety Report 9497255 (Version 1)
Quarter: 2013Q3

REPORT INFORMATION
  Report Type: Spontaneous
  Country: MX (occurrence: MX)
  Receive Date: 20130904
  Receipt Date: 20130904
  Transmission Date: 20140515
  Serious: Yes (Other)
  Sender: FDA-Public Use
  Company Number: PHHY2013MX096635

PATIENT
  Age: 90 Year
  Sex: Male

DRUGS (5)
  1. EXELON PATCH [Suspect]
     Indication: DEMENTIA ALZHEIMER^S TYPE
     Dosage: 4.6 MG, DAILY
     Route: 062
  2. EXELON PATCH [Suspect]
     Dosage: 9.5 MG, DAILY
     Route: 062
  3. HYDERGINE [Concomitant]
     Dosage: 1 UKN, DAILY
  4. ZYLOPRIM [Concomitant]
     Dosage: 1 UKN, DAILY
  5. ERYTHROPOIETIN [Concomitant]
     Dosage: UNK UKN, UNK

REACTIONS (2)
  - Renal disorder [Recovered/Resolved]
  - Loss of consciousness [Recovered/Resolved]
